FAERS Safety Report 25429528 (Version 1)
Quarter: 2025Q2

REPORT INFORMATION
  Report Type: Spontaneous
  Country: US (occurrence: None)
  Receive Date: 20250612
  Receipt Date: 20250612
  Transmission Date: 20250716
  Serious: Yes (Death)
  Sender: FDA-CTU
  Company Number: None

PATIENT
  Age: 60 Year
  Sex: Male
  Weight: 63.3 kg

DRUGS (12)
  1. NORVIR [Suspect]
     Active Substance: RITONAVIR
     Indication: HIV infection
     Dosage: 100 MG 1 PACKET BY  GTUBE D ?
     Route: 050
     Dates: start: 20240402, end: 20250610
  2. TIVICAY [Suspect]
     Active Substance: DOLUTEGRAVIR SODIUM
     Indication: HIV infection
     Route: 050
     Dates: end: 20250610
  3. MIDODRINE [Concomitant]
     Active Substance: MIDODRINE
  4. PREZISTA [Concomitant]
     Active Substance: DARUNAVIR ETHANOLATE
  5. FERROUS SULFATE [Concomitant]
     Active Substance: FERROUS SULFATE
  6. LAMIVUDINE [Concomitant]
     Active Substance: LAMIVUDINE
  7. VALPROIC ACID [Concomitant]
     Active Substance: VALPROIC ACID
  8. ABACAVIR [Concomitant]
     Active Substance: ABACAVIR
  9. SODIUM CHLORIDE [Concomitant]
     Active Substance: SODIUM CHLORIDE
  10. Metoprolol tartar^ate [Concomitant]
  11. Prvastatin [Concomitant]
  12. LEVOTHYROXINE [Concomitant]
     Active Substance: LEVOTHYROXINE

REACTIONS (3)
  - Acute respiratory failure [None]
  - Hypoxia [None]
  - Pneumonia [None]

NARRATIVE: CASE EVENT DATE: 20250610
